FAERS Safety Report 15774777 (Version 1)
Quarter: 2018Q4

REPORT INFORMATION
  Report Type: Report from Study
  Country: US (occurrence: US)
  Receive Date: 20181230
  Receipt Date: 20181230
  Transmission Date: 20190205
  Serious: Yes (Other)
  Sender: FDA-Public Use
  Company Number: PHEH2018US055132

PATIENT
  Sex: Female

DRUGS (1)
  1. TRAVATAN [Suspect]
     Active Substance: TRAVOPROST
     Indication: GLAUCOMA
     Route: 047

REACTIONS (4)
  - Macular degeneration [Unknown]
  - Diabetes mellitus [Unknown]
  - Bone marrow failure [Unknown]
  - Hypoacusis [Unknown]
